FAERS Safety Report 6017764-6 (Version None)
Quarter: 2008Q4

REPORT INFORMATION
  Report Type: 
  Country: None (occurrence: None)
  Receive Date: 20081223
  Receipt Date: 20081216
  Transmission Date: 20090506
  Serious: Yes (Hospitalization, Other)
  Sender: FDA-Public Use
  Company Number: US-BIOGENIDEC-2008BI031755

PATIENT
  Sex: Female

DRUGS (1)
  1. TYSABRI [Suspect]
     Indication: MULTIPLE SCLEROSIS
     Route: 042
     Dates: start: 20071126

REACTIONS (5)
  - CYSTITIS [None]
  - DELIRIUM [None]
  - MULTIPLE SCLEROSIS [None]
  - PAIN [None]
  - RENAL FAILURE [None]
